FAERS Safety Report 5585231-X (Version None)
Quarter: 2008Q1

REPORT INFORMATION
  Report Type: 
  Country: None (occurrence: None)
  Receive Date: 20080108
  Receipt Date: 20080108
  Transmission Date: 20080703
  Serious: No
  Sender: FDA-Public Use
  Company Number: None

PATIENT
  Age: 28 Year
  Sex: Male

DRUGS (1)
  1. LOMOTIL [Suspect]
     Dates: start: 20050501, end: 20050501

REACTIONS (5)
  - CHOLESTASIS [None]
  - HEPATIC FAILURE [None]
  - HEPATIC FIBROSIS [None]
  - HYPERSEXUALITY [None]
  - LIVER INJURY [None]
